FAERS Safety Report 9133469 (Version 8)
Quarter: 2014Q2

REPORT INFORMATION
  Report Type: Spontaneous
  Country: US (occurrence: US)
  Receive Date: 20130301
  Receipt Date: 20140513
  Transmission Date: 20141212
  Serious: Yes (Hospitalization, Disabling, Other)
  Sender: FDA-Public Use
  Company Number: US-009507513-1303USA000354

PATIENT
  Sex: Female
  Weight: 59.86 kg

DRUGS (4)
  1. FOSAMAX [Suspect]
     Indication: OSTEOPOROSIS
     Dosage: 70 MG, UNK
     Route: 048
     Dates: start: 20020203, end: 200707
  2. FOSAMAX [Suspect]
     Dosage: 10 UNK, UNK
     Route: 048
     Dates: start: 1996
  3. OS-CAL (CALCITRIOL) [Concomitant]
     Dosage: 600 MG, BID
     Dates: start: 1983
  4. MECLIZINE [Concomitant]
     Indication: NAUSEA
     Dosage: UNK
     Dates: start: 200201, end: 2006

REACTIONS (51)
  - Femur fracture [Unknown]
  - Intramedullary rod insertion [Unknown]
  - Femur fracture [Unknown]
  - Intramedullary rod insertion [Unknown]
  - Low turnover osteopathy [Not Recovered/Not Resolved]
  - Renal failure chronic [Not Recovered/Not Resolved]
  - Cerebrovascular accident [Unknown]
  - Bronchitis [Unknown]
  - Chest pain [Unknown]
  - Hypothyroidism [Unknown]
  - Anxiety [Unknown]
  - Blood cholesterol increased [Unknown]
  - Bacterial infection [Unknown]
  - Depression [Unknown]
  - Bacterial infection [Unknown]
  - Neuritis [Unknown]
  - Osteopenia [Unknown]
  - Herpes zoster [Unknown]
  - Herpes zoster [Unknown]
  - Fatigue [Unknown]
  - Joint stiffness [Unknown]
  - Anaemia [Unknown]
  - Wrist fracture [Unknown]
  - Osteoarthritis [Unknown]
  - Diverticulitis [Unknown]
  - Intraocular lens implant [Unknown]
  - Blepharoplasty [Unknown]
  - Carotid artery stenosis [Unknown]
  - High density lipoprotein decreased [Unknown]
  - Cystocele [Unknown]
  - Chest pain [Unknown]
  - Essential hypertension [Unknown]
  - Radiculitis [Unknown]
  - Coronary artery disease [Unknown]
  - Neuritis [Unknown]
  - Rectocele [Unknown]
  - Pelvic pain [Unknown]
  - Neuralgia [Unknown]
  - Vaginal prolapse [Unknown]
  - Asthenia [Unknown]
  - Pain in jaw [Unknown]
  - Pain in extremity [Unknown]
  - Back pain [Unknown]
  - Rash [Unknown]
  - Constipation [Unknown]
  - Gastrooesophageal reflux disease [Unknown]
  - Nausea [Unknown]
  - Arthralgia [Unknown]
  - Pain in extremity [Unknown]
  - Abdominal pain [Unknown]
  - Musculoskeletal pain [Unknown]
